FAERS Safety Report 5921679-9 (Version None)
Quarter: 2008Q3

REPORT INFORMATION
  Report Type: 
  Country: None (occurrence: None)
  Receive Date: 20080909
  Receipt Date: 20071016
  Transmission Date: 20090109
  Serious: Yes (Disabling, Other)
  Sender: FDA-Public Use
  Company Number: 163-20785-07021371

PATIENT
  Age: 75 Year
  Sex: Male

DRUGS (6)
  1. THALOMID [Suspect]
     Indication: MULTIPLE MYELOMA
     Dosage: 50 MG, QHS, ORAL ; 100 MG, QD, ORAL ; 50 MG, 1 IN 1 D, ORAL
     Route: 048
     Dates: start: 20061128, end: 20070220
  2. THALOMID [Suspect]
     Indication: MULTIPLE MYELOMA
     Dosage: 50 MG, QHS, ORAL ; 100 MG, QD, ORAL ; 50 MG, 1 IN 1 D, ORAL
     Route: 048
     Dates: start: 20070228, end: 20070501
  3. THALOMID [Suspect]
     Indication: MULTIPLE MYELOMA
     Dosage: 50 MG, QHS, ORAL ; 100 MG, QD, ORAL ; 50 MG, 1 IN 1 D, ORAL
     Route: 048
     Dates: start: 20070523, end: 20070628
  4. DEXAMETHASONE TAB [Concomitant]
  5. VELCADE [Concomitant]
  6. AREDIA [Concomitant]

REACTIONS (7)
  - ABASIA [None]
  - ABDOMINAL DISCOMFORT [None]
  - FATIGUE [None]
  - LETHARGY [None]
  - MUSCLE SPASMS [None]
  - MUSCULOSKELETAL STIFFNESS [None]
  - PAIN IN EXTREMITY [None]
